FAERS Safety Report 4575829-X (Version None)
Quarter: 2005Q1

REPORT INFORMATION
  Report Type: 
  Country: None (occurrence: None)
  Receive Date: 20050204
  Receipt Date: 20050121
  Transmission Date: 20050727
  Serious: Yes (Other)
  Sender: FDA-Public Use
  Company Number: 2005017731

PATIENT
  Age: 57 Year
  Sex: Male

DRUGS (4)
  1. AMLODIPINE [Suspect]
     Indication: HYPERTENSION
     Dosage: 1 DF (1 IN 1D)
  2. ATENOLOL [Suspect]
     Indication: HYPERTENSION
     Dosage: 1 DF (1 IN 1 D)
  3. PRAZOSIN HYDROCHLORIDE(PRAZOSIN HYDROCHLORIDE) [Suspect]
     Indication: HYPERTENSION
  4. DEXTROMETHORPHAN HYDROBROMIDE [Concomitant]

REACTIONS (1)
  - METABOLIC DISORDER [None]
